FAERS Safety Report 9246408 (Version 1)
Quarter: 2013Q2

REPORT INFORMATION
  Report Type: Spontaneous
  Country: US (occurrence: US)
  Receive Date: 20130422
  Receipt Date: 20130422
  Transmission Date: 20140414
  Serious: Yes (Life-Threatening, Hospitalization, Other)
  Sender: FDA-Public Use
  Company Number: US-ASTELLAS-2013US000438

PATIENT
  Age: 72 Year
  Sex: Male

DRUGS (11)
  1. LEXISCAN [Suspect]
     Indication: SCAN MYOCARDIAL PERFUSION
     Dosage: UNK
     Route: 040
     Dates: start: 20130108, end: 20130108
  2. CARDURA [Concomitant]
     Indication: BENIGN PROSTATIC HYPERPLASIA
     Dosage: UNK
     Route: 065
  3. LANTUS [Concomitant]
     Indication: DIABETES MELLITUS
     Dosage: 55 U, UID/QD
     Route: 065
  4. NOVOLOG [Concomitant]
     Indication: DIABETES MELLITUS
     Dosage: UNK
     Route: 065
  5. COREG [Concomitant]
     Indication: PRODUCT USED FOR UNKNOWN INDICATION
     Dosage: UNK
     Route: 065
  6. ASA [Concomitant]
     Indication: PRODUCT USED FOR UNKNOWN INDICATION
     Dosage: UNK
     Route: 065
  7. BENAZEPRIL [Concomitant]
     Indication: PRODUCT USED FOR UNKNOWN INDICATION
     Dosage: UNK
     Route: 065
  8. NIACIN [Concomitant]
     Indication: PRODUCT USED FOR UNKNOWN INDICATION
     Dosage: UNK
     Route: 065
  9. LOVASTATIN [Concomitant]
     Indication: PRODUCT USED FOR UNKNOWN INDICATION
     Dosage: UNK
     Route: 065
  10. NIASPAN [Concomitant]
     Indication: DYSLIPIDAEMIA
     Dosage: UNK
     Route: 065
  11. MEVACOR [Concomitant]
     Indication: DYSLIPIDAEMIA
     Dosage: UNK
     Route: 065

REACTIONS (7)
  - Presyncope [Unknown]
  - Loss of consciousness [Recovered/Resolved]
  - Hypoxia [Recovering/Resolving]
  - Cardiac arrest [Unknown]
  - Hypertension [Unknown]
  - Vomiting [Recovered/Resolved]
  - Nausea [Unknown]
